FAERS Safety Report 5494703-8 (Version None)
Quarter: 2007Q4

REPORT INFORMATION
  Report Type: 
  Country: None (occurrence: None)
  Receive Date: 20071024
  Receipt Date: 20071018
  Transmission Date: 20080405
  Serious: Yes (Hospitalization)
  Sender: FDA-Public Use
  Company Number: ES-MERCK-0710ESP00035

PATIENT
  Age: 71 Year
  Sex: Male

DRUGS (3)
  1. ZETIA [Suspect]
     Route: 048
     Dates: start: 20060101, end: 20060712
  2. CHLORTHALIDONE AND SPIRONOLACTONE [Suspect]
     Route: 048
     Dates: start: 20060101, end: 20060712
  3. ROSIGLITAZONE MALEATE [Suspect]
     Route: 048
     Dates: start: 20060101, end: 20060712

REACTIONS (2)
  - HYPERKALAEMIA [None]
  - OEDEMA [None]
